FAERS Safety Report 8604292-4 (Version None)
Quarter: 2012Q3

REPORT INFORMATION
  Report Type: 
  Country: None (occurrence: None)
  Receive Date: 20120807
  Receipt Date: 20120802
  Transmission Date: 20120928
  Serious: Yes (Disabling, Other)
  Sender: FDA-Public Use
  Company Number: GER/UKI/12/0025291

PATIENT
  Age: 72 Year
  Sex: Female
  Weight: 71.66 kg

DRUGS (7)
  1. BENDROFLUMETHIAZIDE (BENDROFLUMETHIAZIDE) [Concomitant]
  2. PERINDOPRIL TERT-BUTYLAMINE SALT (PERINOPRIL) [Concomitant]
  3. SIMVASTATIN [Suspect]
     Indication: HYPERCHOLESTEROLAEMIA
     Dosage: 40 MG, ORAL
     Route: 048
     Dates: start: 20070201, end: 20120501
  4. ASPIRIN [Concomitant]
  5. AMLIDIPINE (AMLODIPINE) [Concomitant]
  6. ATORVASTATIN [Suspect]
     Indication: PRODUCT USED FOR UNKNOWN INDICATION
     Dosage: 40 MG, ORAL
     Route: 048
  7. PERSANTIN [Concomitant]

REACTIONS (3)
  - PAIN IN EXTREMITY [None]
  - AMNESIA [None]
  - ARTHRITIS [None]
